FAERS Safety Report 6587823-8 (Version None)
Quarter: 2010Q1

REPORT INFORMATION
  Report Type: 
  Country: None (occurrence: None)
  Receive Date: 20100218
  Receipt Date: 20100209
  Transmission Date: 20100710
  Serious: Yes (Other)
  Sender: FDA-Public Use
  Company Number: PHHY2010AT05439

PATIENT
  Sex: Male

DRUGS (2)
  1. EUCREAS [Suspect]
     Dosage: UNK
  2. BETA BLOCKING AGENTS [Concomitant]

REACTIONS (3)
  - ANGINA PECTORIS [None]
  - EXTRASYSTOLES [None]
  - PALPITATIONS [None]
